FAERS Safety Report 20463293 (Version 2)
Quarter: 2022Q1

REPORT INFORMATION
  Report Type: Report from Study
  Country: CA (occurrence: CA)
  Receive Date: 20220211
  Receipt Date: 20220302
  Transmission Date: 20220423
  Serious: Yes (Other)
  Sender: FDA-Public Use
  Company Number: CA-ABBVIE-22K-028-4265653-00

PATIENT
  Age: 62 Year
  Sex: Female

DRUGS (4)
  1. RINVOQ [Suspect]
     Active Substance: UPADACITINIB
     Indication: Rheumatoid arthritis
     Route: 048
     Dates: start: 20210216
  2. RINVOQ [Suspect]
     Active Substance: UPADACITINIB
     Route: 048
  3. RINVOQ [Suspect]
     Active Substance: UPADACITINIB
     Route: 048
     Dates: end: 202201
  4. RINVOQ [Suspect]
     Active Substance: UPADACITINIB
     Route: 048
     Dates: start: 20220213

REACTIONS (9)
  - Asphyxia [Unknown]
  - Pharyngeal haemorrhage [Unknown]
  - Illness [Not Recovered/Not Resolved]
  - Haemorrhage [Unknown]
  - Psychiatric symptom [Unknown]
  - Bone pain [Unknown]
  - Bone swelling [Unknown]
  - Pneumonia [Unknown]
  - Sinusitis [Unknown]

NARRATIVE: CASE EVENT DATE: 20211101
